FAERS Safety Report 6012198-2 (Version None)
Quarter: 2008Q4

REPORT INFORMATION
  Report Type: 
  Country: None (occurrence: None)
  Receive Date: 20081216
  Receipt Date: 20071217
  Transmission Date: 20090506
  Serious: Yes (Life-Threatening, Other)
  Sender: FDA-Public Use
  Company Number: US-WYE-H01807207

PATIENT
  Age: 44 Year
  Sex: Female
  Weight: 69.01 kg

DRUGS (7)
  1. EFFEXOR XR [Suspect]
     Indication: ANXIETY
     Dosage: 75 MG 1X PER 1 DAY, ORAL
     Route: 048
     Dates: start: 20071123, end: 20071101
  2. EFFEXOR XR [Suspect]
     Indication: FLUSHING
     Dosage: 75 MG 1X PER 1 DAY, ORAL
     Route: 048
     Dates: start: 20071123, end: 20071101
  3. EFFEXOR XR [Suspect]
     Indication: MOOD SWINGS
     Dosage: 75 MG 1X PER 1 DAY, ORAL
     Route: 048
     Dates: start: 20071123, end: 20071101
  4. AMBIEN CR [Concomitant]
  5. TOPAMAX [Concomitant]
  6. MOTRIN [Concomitant]
  7. RELPAX [Concomitant]

REACTIONS (2)
  - FEELING ABNORMAL [None]
  - SUICIDAL IDEATION [None]
